FAERS Safety Report 21902717 (Version 4)
Quarter: 2023Q1

REPORT INFORMATION
  Report Type: Report from Study
  Country: CA (occurrence: CA)
  Receive Date: 20230124
  Receipt Date: 20230331
  Transmission Date: 20230417
  Serious: Yes (Other)
  Sender: FDA-Public Use
  Company Number: CA-TAKEDA-2023TUS006541

PATIENT
  Age: 61 Year
  Sex: Female

DRUGS (4)
  1. VEDOLIZUMAB [Suspect]
     Active Substance: VEDOLIZUMAB
     Indication: Colitis ulcerative
     Dosage: 300 MILLIGRAM
     Route: 042
     Dates: start: 20221026
  2. VEDOLIZUMAB [Suspect]
     Active Substance: VEDOLIZUMAB
     Dosage: 300 MILLIGRAM, Q4WEEKS
     Route: 042
     Dates: start: 20230120, end: 20230315
  3. MESALAMINE [Suspect]
     Active Substance: MESALAMINE
     Indication: Product used for unknown indication
     Dosage: UNK
     Route: 065
  4. PREDNISONE [Concomitant]
     Active Substance: PREDNISONE
     Dosage: UNK

REACTIONS (11)
  - Colitis ulcerative [Not Recovered/Not Resolved]
  - Rectal haemorrhage [Unknown]
  - Haematochezia [Unknown]
  - Diarrhoea [Unknown]
  - Peripheral swelling [Unknown]
  - Frequent bowel movements [Unknown]
  - Abnormal faeces [Unknown]
  - Product residue present [Unknown]
  - Oedema peripheral [Not Recovered/Not Resolved]
  - Off label use [Unknown]
  - Therapy non-responder [Unknown]

NARRATIVE: CASE EVENT DATE: 20230120
